FAERS Safety Report 4358007-9 (Version None)
Quarter: 2004Q2

REPORT INFORMATION
  Report Type: 
  Country: None (occurrence: None)
  Receive Date: 20040511
  Receipt Date: 20040505
  Transmission Date: 20050107
  Serious: Yes (Hospitalization)
  Sender: FDA-Public Use
  Company Number: MK200405-0048-1

PATIENT
  Age: 73 Year
  Sex: Female

DRUGS (2)
  1. PAMELOR [Suspect]
     Dates: start: 20040327, end: 20040427
  2. DIPYRONE [Concomitant]

REACTIONS (7)
  - ABDOMINAL PAIN [None]
  - ANAEMIA [None]
  - BLINDNESS [None]
  - CEREBROVASCULAR ACCIDENT [None]
  - CONDITION AGGRAVATED [None]
  - DEPRESSION [None]
  - HEADACHE [None]
